FAERS Safety Report 18206023 (Version 1)
Quarter: 2020Q3

REPORT INFORMATION
  Report Type: Spontaneous
  Country: US (occurrence: US)
  Receive Date: 20200828
  Receipt Date: 20200828
  Transmission Date: 20201103
  Serious: No
  Sender: FDA-Public Use
  Company Number: US-SA-2020SA230209

PATIENT

DRUGS (8)
  1. VITAMIN D3 [Concomitant]
     Active Substance: CHOLECALCIFEROL
  2. PEPTO?BISMOL [Concomitant]
     Active Substance: BISMUTH SUBSALICYLATE
  3. DALFAMPRIDINE. [Concomitant]
     Active Substance: DALFAMPRIDINE
  4. CENTRUM PLUS [Concomitant]
     Active Substance: VITAMINS
  5. VITAMIN B12 [Concomitant]
     Active Substance: CYANOCOBALAMIN
  6. AUBAGIO [Suspect]
     Active Substance: TERIFLUNOMIDE
     Indication: MULTIPLE SCLEROSIS
     Dosage: 14 MG, QD
     Route: 048
     Dates: start: 2018
  7. CALCIUM [Concomitant]
     Active Substance: CALCIUM
  8. VITAMIN A [RETINOL] [Concomitant]
     Active Substance: RETINOL

REACTIONS (1)
  - Alopecia [Not Recovered/Not Resolved]
